FAERS Safety Report 9785879 (Version 1)
Quarter: 2013Q4

REPORT INFORMATION
  Report Type: Spontaneous
  Country: CA (occurrence: None)
  Receive Date: 20131224
  Receipt Date: 20131224
  Transmission Date: 20140711
  Serious: Yes (Hospitalization)
  Sender: FDA-Public Use
  Company Number: CA-014074

PATIENT
  Age: 82 Year
  Sex: Male

DRUGS (9)
  1. FIRMAGON [Suspect]
     Indication: PROSTATE CANCER
     Route: 058
     Dates: start: 20120401, end: 20120401
  2. PRADEX [Concomitant]
  3. MONOCOR [Concomitant]
  4. LIPITOR [Concomitant]
  5. SENNA /00142207/ [Concomitant]
  6. CENTRUM SELECT [Concomitant]
  7. ZYTIGA [Concomitant]
  8. PREDNISONE [Concomitant]
  9. VITAMIN B12 /07503801/ [Concomitant]

REACTIONS (2)
  - Metastases to bone [None]
  - Localised infection [None]
